FAERS Safety Report 9514540 (Version 2)
Quarter: 2013Q3

REPORT INFORMATION
  Report Type: Report from Study
  Country: TW (occurrence: TW)
  Receive Date: 20130911
  Receipt Date: 20130911
  Transmission Date: 20140515
  Serious: Yes (Hospitalization)
  Sender: FDA-Public Use
  Company Number: TW-BRISTOL-MYERS SQUIBB COMPANY-16806937

PATIENT
  Age: 50 Year
  Sex: Female

DRUGS (9)
  1. ARIPIPRAZOLE IM DEPOT [Suspect]
     Indication: SCHIZOPHRENIA
     Dosage: 10APR2012-3JUL12(85D)
     Route: 030
     Dates: start: 20120410, end: 20120703
  2. ABILIFY TABS [Suspect]
     Indication: SCHIZOPHRENIA
     Dosage: 27DEC2011-29DEC2011(3D)?30DEC2011-17JUL2012(201D);6MG
     Route: 048
     Dates: start: 20111227
  3. LENDORMIN [Concomitant]
     Dates: start: 20120605
  4. IBUPROFEN [Concomitant]
     Dates: start: 20120706, end: 20120711
  5. AMOXYCILLIN [Concomitant]
     Dates: start: 20120706, end: 20120711
  6. BUSCOPAN [Concomitant]
     Dates: start: 20120706, end: 20120711
  7. MICONAZOLE NITRATE [Concomitant]
     Dates: start: 20120706, end: 20120711
  8. MYLANTA [Concomitant]
     Dosage: MAG HYDROXIDE 200MG+ ALUMINIUM HYDROX 200MG METHYLPOLYSILOAXANE 20MG
     Dates: start: 20120706, end: 20120711
  9. SERTACONAZOLE [Concomitant]
     Dates: start: 20120712, end: 20120712

REACTIONS (1)
  - Schizophrenia [Recovered/Resolved]
